FAERS Safety Report 8024734-5 (Version None)
Quarter: 2012Q1

REPORT INFORMATION
  Report Type: 
  Country: None (occurrence: None)
  Receive Date: 20120105
  Receipt Date: 20111227
  Transmission Date: 20120608
  Serious: Yes (Hospitalization)
  Sender: FDA-Public Use
  Company Number: US-ACTELION-A-US2011-57261

PATIENT

DRUGS (2)
  1. TRACLEER [Suspect]
     Indication: PULMONARY ARTERIAL HYPERTENSION
     Dosage: UNK MG, UNK
     Route: 048
     Dates: start: 20081010
  2. REVATIO [Concomitant]

REACTIONS (5)
  - SEPSIS [None]
  - OXYGEN SATURATION DECREASED [None]
  - PYREXIA [None]
  - HERPES VIRUS INFECTION [None]
  - DYSPNOEA [None]
